FAERS Safety Report 9628728 (Version 2)
Quarter: 2013Q4

REPORT INFORMATION
  Report Type: Spontaneous
  Country: FI (occurrence: FI)
  Receive Date: 20131017
  Receipt Date: 20131017
  Transmission Date: 20140711
  Serious: Yes (Other)
  Sender: FDA-Public Use
  Company Number: FI-JNJFOC-20130913791

PATIENT
  Age: 32 Year
  Sex: Male

DRUGS (4)
  1. REMICADE [Suspect]
     Indication: COLITIS ULCERATIVE
     Dosage: TOTAL DOSE OF 500 MG
     Route: 042
     Dates: start: 20121108
  2. REMICADE [Suspect]
     Indication: COLITIS ULCERATIVE
     Dosage: 5TH INFUSION
     Route: 042
     Dates: start: 20130422, end: 20130422
  3. AZAMUN [Concomitant]
     Indication: COLITIS ULCERATIVE
     Route: 048
     Dates: start: 20081222, end: 20130612
  4. AZAMUN [Concomitant]
     Indication: COLITIS ULCERATIVE
     Route: 048
     Dates: start: 2013

REACTIONS (2)
  - Hepatic necrosis [Unknown]
  - Hepatic enzyme increased [Recovered/Resolved]
